FAERS Safety Report 17094333 (Version 1)
Quarter: 2019Q4

REPORT INFORMATION
  Report Type: Spontaneous
  Country: GB (occurrence: GB)
  Receive Date: 20191129
  Receipt Date: 20191129
  Transmission Date: 20200122
  Serious: Yes (Other)
  Sender: FDA-Public Use
  Company Number: GB-PFIZER INC-2019512846

PATIENT
  Age: 40 Year
  Sex: Female
  Weight: 74 kg

DRUGS (10)
  1. OMEPRAZOLE. [Concomitant]
     Active Substance: OMEPRAZOLE
     Dosage: 1 DF, DAILY (AS NEEDED)
     Dates: start: 20180906
  2. SALBUTAMOL [Concomitant]
     Active Substance: ALBUTEROL
     Indication: ASTHMA
     Dosage: 2 DF, AS NEEDED
     Dates: start: 20181008
  3. MONTELUKAST [Concomitant]
     Active Substance: MONTELUKAST SODIUM
     Indication: ASTHMA
     Dosage: 1 DF, 1X/DAY (AT NIGHT)
     Dates: start: 20181008, end: 20190927
  4. FOLIC ACID. [Concomitant]
     Active Substance: FOLIC ACID
     Dosage: 1 DF, 1X/DAY
     Dates: start: 20190902
  5. INFLUVAC SUB-UNIT [Concomitant]
     Dates: start: 20190928, end: 20190928
  6. VARENICLINE TARTRATE [Suspect]
     Active Substance: VARENICLINE TARTRATE
     Dosage: 2 MG, 1X/DAY
     Dates: start: 20191008, end: 20191022
  7. MACROGOL [Concomitant]
     Active Substance: POLYETHYLENE GLYCOLS
     Dosage: UNK UNK, AS NEEDED (ONCE OR TWICE DAILY AS NEEDED)
     Dates: start: 20160909, end: 20190902
  8. FEMOSTON [Concomitant]
     Active Substance: DYDROGESTERONE\ESTRADIOL
     Indication: HORMONE REPLACEMENT THERAPY
     Dosage: 1 DF, 1X/DAY (CONTINUOUS COMBINED HORMONE REPLACEMENT THERAPY)
     Dates: start: 20190905
  9. BECLOMETASONE [Concomitant]
     Active Substance: BECLOMETHASONE DIPROPIONATE
     Dosage: 8 DF, 1X/DAY (2 PUFFS IN EACH NOSTRIL)
     Dates: start: 20180425, end: 20190927
  10. CLENIL MODULITE [Concomitant]
     Active Substance: BECLOMETHASONE DIPROPIONATE
     Indication: ASTHMA
     Dosage: 4 DF, 1X/DAY
     Dates: start: 20180910, end: 20190902

REACTIONS (3)
  - Throat tightness [Unknown]
  - Dyspnoea [Unknown]
  - Asthma [Recovered/Resolved]
